FAERS Safety Report 6816598 (Version 10)
Quarter: 2015Q4

REPORT INFORMATION
  Report Type: Spontaneous
  Country: US (occurrence: US)
  Receive Date: 20081120
  Receipt Date: 20151013
  Transmission Date: 20160305
  Serious: Yes (Other)
  Sender: FDA-Public Use
  Company Number: US-ASTRAZENECA-2005UW17808

PATIENT
  Age: 72 Year
  Sex: Female
  Weight: 62.1 kg

DRUGS (9)
  1. DIOVAN [Suspect]
     Active Substance: VALSARTAN
     Route: 065
     Dates: start: 200909, end: 201110
  2. AVASTIN [Suspect]
     Active Substance: BEVACIZUMAB
     Route: 065
  3. VITAMINS NOS [Concomitant]
     Active Substance: VITAMINS
  4. TENORMIN [Interacting]
     Active Substance: ATENOLOL
     Indication: HYPERTENSION
     Route: 048
     Dates: start: 20051215, end: 200805
  5. TENORMIN [Interacting]
     Active Substance: ATENOLOL
     Indication: HYPERTENSION
     Route: 048
     Dates: start: 20051215, end: 200805
  6. BACTRIM [Interacting]
     Active Substance: SULFAMETHOXAZOLE\TRIMETHOPRIM
     Indication: INFECTION
     Dosage: 25/50 ONCE A DAY
     Route: 048
     Dates: start: 200508, end: 20050910
  7. BABY ASPIRIN [Concomitant]
     Active Substance: ASPIRIN
  8. ATENOLOL/CHLORTHIADONE(MYLAN) [Concomitant]
     Dates: end: 20080501
  9. ZESTORETIC [Interacting]
     Active Substance: HYDROCHLOROTHIAZIDE\LISINOPRIL
     Indication: HYPERTENSION
     Route: 048
     Dates: start: 200203, end: 20051123

REACTIONS (48)
  - Cerebral atrophy [Unknown]
  - Renal failure [Unknown]
  - Wound infection [Unknown]
  - Heart rate irregular [Unknown]
  - Ischaemia [Unknown]
  - Nasal congestion [Unknown]
  - Myocardial infarction [Unknown]
  - Dysgraphia [Unknown]
  - Epistaxis [Unknown]
  - Coronary artery occlusion [Unknown]
  - Anaphylactic reaction [Unknown]
  - Hypertension [Unknown]
  - Ulcer [Unknown]
  - Ear haemorrhage [Unknown]
  - Speech disorder [Unknown]
  - Transient ischaemic attack [Unknown]
  - Tympanic membrane perforation [Unknown]
  - Arrhythmia [Unknown]
  - Kidney infection [Unknown]
  - Eye pain [Unknown]
  - Renal disorder [Unknown]
  - Purpura [Recovered/Resolved]
  - Eye haemorrhage [Unknown]
  - Ureteric cancer [Unknown]
  - Cerebrovascular accident [Recovered/Resolved]
  - Tinnitus [Recovering/Resolving]
  - Pain [Recovering/Resolving]
  - Cardiac disorder [Unknown]
  - Bladder disorder [Unknown]
  - Diarrhoea [Unknown]
  - Palpitations [Recovered/Resolved]
  - Drug interaction [Unknown]
  - Blindness unilateral [Unknown]
  - Deafness [Not Recovered/Not Resolved]
  - Accident [Unknown]
  - Cardiac disorder [Unknown]
  - Mitral valve disease [Unknown]
  - Overdose [Unknown]
  - Bladder cancer [Unknown]
  - Urethral cancer [Unknown]
  - Renal colic [Unknown]
  - Decreased appetite [Unknown]
  - Headache [Recovering/Resolving]
  - Cardiomegaly [Unknown]
  - Carditis [Unknown]
  - Irregular breathing [Recovered/Resolved]
  - Eye disorder [Unknown]
  - Visual acuity reduced [Unknown]

NARRATIVE: CASE EVENT DATE: 2005
